FAERS Safety Report 4931941-4 (Version None)
Quarter: 2006Q1

REPORT INFORMATION
  Report Type: 
  Country: None (occurrence: None)
  Receive Date: 20060303
  Receipt Date: 20051019
  Transmission Date: 20060701
  Serious: Yes (Other)
  Sender: FDA-Public Use
  Company Number: US-MERCK-0510USA08266

PATIENT
  Age: 62 Year
  Sex: Male
  Weight: 73 kg

DRUGS (5)
  1. VIOXX [Suspect]
     Indication: ARTHRITIS
     Route: 048
     Dates: start: 19990520, end: 20020101
  2. ASPIRIN [Concomitant]
     Indication: PROPHYLAXIS
     Route: 065
     Dates: start: 19990101
  3. PLAVIX [Concomitant]
     Route: 065
     Dates: start: 19990101
  4. CELEBREX [Concomitant]
     Route: 065
     Dates: start: 20020101, end: 20040101
  5. NAPROXEN [Concomitant]
     Route: 065

REACTIONS (7)
  - ANXIETY [None]
  - BACK INJURY [None]
  - BLOOD CHOLESTEROL INCREASED [None]
  - CEREBROVASCULAR ACCIDENT [None]
  - MYOCARDIAL INFARCTION [None]
  - OESOPHAGEAL DISORDER [None]
  - OVERDOSE [None]
